FAERS Safety Report 4567642-4 (Version None)
Quarter: 2005Q1

REPORT INFORMATION
  Report Type: 
  Country: None (occurrence: None)
  Receive Date: 20050110
  Receipt Date: 20050110
  Transmission Date: 20050727
  Serious: Yes (Other)
  Sender: FDA-Public Use
  Company Number: None

PATIENT
  Sex: Male

DRUGS (1)
  1. REMERON [Suspect]
     Dosage: 15 MG PO QHS
     Route: 048
     Dates: start: 20010201

REACTIONS (2)
  - PHARMACEUTICAL PRODUCT COMPLAINT [None]
  - PYREXIA [None]
